FAERS Safety Report 10071938 (Version 2)
Quarter: 2014Q2

REPORT INFORMATION
  Report Type: Spontaneous
  Country: US (occurrence: US)
  Receive Date: 20140411
  Receipt Date: 20140411
  Transmission Date: 20141212
  Serious: Yes (Other)
  Sender: FDA-Public Use
  Company Number: US-BEH-2012033531

PATIENT
  Age: 38 Year
  Sex: Female
  Weight: 81 kg

DRUGS (44)
  1. PRIVIGEN [Suspect]
     Route: 042
     Dates: start: 20120928, end: 20120928
  2. PRIVIGEN [Suspect]
     Route: 042
     Dates: start: 20120928, end: 20120928
  3. PRIVIGEN [Suspect]
     Route: 042
     Dates: start: 20120928, end: 20120928
  4. PRIVIGEN [Suspect]
     Route: 042
  5. PRIVIGEN [Suspect]
     Indication: IMMUNODEFICIENCY COMMON VARIABLE
     Route: 042
  6. PRIVIGEN [Suspect]
     Dosage: 20 GM VIAL
     Route: 042
  7. PRIVIGEN [Suspect]
     Dosage: 5 GM VIAL
     Route: 042
  8. PRIVIGEN [Suspect]
     Route: 042
  9. PRIVIGEN [Suspect]
     Route: 042
  10. PRIVIGEN [Suspect]
     Route: 042
  11. PRIVIGEN [Suspect]
     Dosage: 5 G VIAL
     Route: 042
  12. PRIVIGEN [Suspect]
     Dosage: 10 G VIAL
     Route: 042
  13. PRIVIGEN [Suspect]
     Dosage: 20 G VIAL
     Route: 042
  14. PRIVIGEN [Suspect]
     Dosage: 5 GM VIAL
     Route: 042
  15. PRIVIGEN [Suspect]
     Dosage: 10 GM VIAL
     Route: 042
  16. PRIVIGEN [Suspect]
     Dosage: 20 GM VIAL
     Route: 042
  17. PRIVIGEN [Suspect]
     Route: 042
  18. PRIVIGEN [Suspect]
     Route: 042
  19. ACETAMINOPHEN [Concomitant]
  20. DIPHENHYDRAMINE [Concomitant]
     Indication: PREMEDICATION
  21. HEPARIN [Concomitant]
  22. SODIUM CHLORIDE [Concomitant]
  23. EPI-PEN [Concomitant]
     Indication: PREMEDICATION
  24. SINGULAIR [Concomitant]
  25. AMBIEN [Concomitant]
  26. LOSARTAN POTASSIUM [Concomitant]
  27. SYNTHROID [Concomitant]
  28. ALLEGRA [Concomitant]
  29. HYDROCHLOROTHIAZIDE [Concomitant]
  30. ADVAIR [Concomitant]
  31. TIZANIDINE [Concomitant]
  32. METOPROLOL SUCCINATE [Concomitant]
  33. CYTOMEL [Concomitant]
  34. REGLAN [Concomitant]
  35. METFORMIN HCL [Concomitant]
  36. LISINOPRIL [Concomitant]
  37. ZOFRAN [Concomitant]
  38. FLONASE [Concomitant]
  39. SUDAFED [Concomitant]
  40. DIFLUCAN [Concomitant]
  41. JANUMET [Concomitant]
  42. CIPROFLOXACIN [Concomitant]
  43. AZITHROMYCIN [Concomitant]
  44. TEMAZEPAM [Concomitant]

REACTIONS (13)
  - Urinary tract infection [Unknown]
  - Eye infection [Unknown]
  - Swelling face [Recovered/Resolved]
  - Lymphadenopathy [Unknown]
  - Ear infection [Unknown]
  - Rhinitis [Unknown]
  - Pharyngitis [Unknown]
  - Nausea [Recovered/Resolved]
  - Headache [Recovered/Resolved]
  - Sinusitis [Unknown]
  - Dysgeusia [Unknown]
  - Sinusitis [Unknown]
  - Sinusitis [Unknown]
